FAERS Safety Report 4632737-3 (Version None)
Quarter: 2005Q2

REPORT INFORMATION
  Report Type: 
  Country: None (occurrence: None)
  Receive Date: 20050408
  Receipt Date: 20050408
  Transmission Date: 20051028
  Serious: Yes (Other)
  Sender: FDA-Public Use
  Company Number: None

PATIENT
  Age: 63 Year
  Sex: Female
  Weight: 53.5244 kg

DRUGS (4)
  1. ELIDEL [Suspect]
     Indication: SEBORRHOEA
     Dosage: AS NEEDED TRANSDERMAL
     Route: 062
     Dates: start: 20040211, end: 20050215
  2. FOSAMAX [Concomitant]
  3. PRORMETRIUM [Concomitant]
  4. VIVELLE [Concomitant]

REACTIONS (1)
  - HERPES SIMPLEX [None]
